FAERS Safety Report 14467942 (Version 3)
Quarter: 2018Q1

REPORT INFORMATION
  Report Type: Spontaneous
  Country: US (occurrence: US)
  Receive Date: 20180131
  Receipt Date: 20180205
  Transmission Date: 20180509
  Serious: No
  Sender: FDA-Public Use
  Company Number: US-PFIZER INC-2018037595

PATIENT
  Age: 57 Year
  Sex: Female

DRUGS (1)
  1. SUTENT [Suspect]
     Active Substance: SUNITINIB MALATE
     Indication: CARCINOID TUMOUR
     Dosage: 37.5 MG, DAILY
     Route: 048
     Dates: start: 20180104

REACTIONS (10)
  - Epistaxis [Unknown]
  - Chills [Unknown]
  - Fatigue [Unknown]
  - Hypogeusia [Unknown]
  - Blood pressure increased [Unknown]
  - Nausea [Unknown]
  - Glossodynia [Unknown]
  - Dysgeusia [Unknown]
  - Product use in unapproved indication [Unknown]
  - Blister [Unknown]

NARRATIVE: CASE EVENT DATE: 20180105
